FAERS Safety Report 7487155-X (Version None)
Quarter: 2011Q2

REPORT INFORMATION
  Report Type: 
  Country: None (occurrence: None)
  Receive Date: 20110510
  Receipt Date: 20110428
  Transmission Date: 20111010
  Serious: Yes (Other)
  Sender: FDA-Public Use
  Company Number: 20110288

PATIENT
  Age: 17 Year
  Sex: Male
  Weight: 68 kg

DRUGS (4)
  1. MIGRANAL [Concomitant]
  2. IBUPROFEN [Concomitant]
  3. BENADRYL [Concomitant]
  4. DEXAMETHASONE SODIUM PHOSPHATE [Suspect]
     Indication: MIGRAINE
     Dosage: 20 MG 1 DAY TREATMENT
     Dates: start: 20110330, end: 20110330

REACTIONS (9)
  - MIGRAINE [None]
  - BALANCE DISORDER [None]
  - OVERDOSE [None]
  - OFF LABEL USE [None]
  - VISION BLURRED [None]
  - NO REACTION ON PREVIOUS EXPOSURE TO DRUG [None]
  - DISEASE RECURRENCE [None]
  - DIZZINESS [None]
  - PRODUCT QUALITY ISSUE [None]
